FAERS Safety Report 5247975-9 (Version None)
Quarter: 2007Q1

REPORT INFORMATION
  Report Type: 
  Country: None (occurrence: None)
  Receive Date: 20070222
  Receipt Date: 20070209
  Transmission Date: 20070707
  Serious: Yes (Hospitalization)
  Sender: FDA-Public Use
  Company Number: 2007-154292-NL

PATIENT
  Age: 38 Year
  Sex: Female

DRUGS (2)
  1. FOLLICLE-STIMULATING HORMONE, HUMAN [Suspect]
     Indication: IN VITRO FERTILISATION
     Dosage: 200 IU NI
  2. LEUPROLIDE ACETATE [Concomitant]

REACTIONS (1)
  - MYOCARDIAL INFARCTION [None]
